FAERS Safety Report 17999893 (Version 6)
Quarter: 2020Q4

REPORT INFORMATION
  Report Type: Spontaneous
  Country: US (occurrence: US)
  Receive Date: 20200709
  Receipt Date: 20201009
  Transmission Date: 20210113
  Serious: Yes (Other)
  Sender: FDA-Public Use
  Company Number: US-PFIZER INC-2020263280

PATIENT
  Age: 80 Year
  Sex: Female
  Weight: 83.46 kg

DRUGS (4)
  1. IBRANCE [Suspect]
     Active Substance: PALBOCICLIB
     Dosage: 125 MG
     Route: 048
     Dates: start: 20200811
  2. IBRANCE [Suspect]
     Active Substance: PALBOCICLIB
     Indication: BREAST CANCER METASTATIC
     Dosage: 125 MG
     Dates: end: 20200803
  3. IBRANCE [Suspect]
     Active Substance: PALBOCICLIB
     Dosage: 125 MG
     Route: 048
  4. ZOMETA [Concomitant]
     Active Substance: ZOLEDRONIC ACID
     Indication: BONE DISORDER
     Dosage: UNK, MONTHLY INFUSION
     Dates: start: 2019

REACTIONS (3)
  - White blood cell count decreased [Not Recovered/Not Resolved]
  - SARS-CoV-2 test positive [Unknown]
  - Weight increased [Unknown]

NARRATIVE: CASE EVENT DATE: 20200803
